FAERS Safety Report 21353750 (Version 3)
Quarter: 2022Q4

REPORT INFORMATION
  Report Type: Spontaneous
  Country: DE (occurrence: DE)
  Receive Date: 20220920
  Receipt Date: 20221027
  Transmission Date: 20230112
  Serious: Yes (Hospitalization, Other)
  Sender: FDA-Public Use
  Company Number: DE-ASTELLAS-2022US033327

PATIENT
  Age: 72 Year
  Sex: Female

DRUGS (26)
  1. PROGRAF [Suspect]
     Active Substance: TACROLIMUS
     Indication: Liver transplant
     Dosage: (1 DF MORNINGS, 2 DF EVENINGS), TWICE DAILY
     Route: 065
     Dates: start: 2005
  2. PROGRAF [Suspect]
     Active Substance: TACROLIMUS
     Indication: Renal transplant
  3. PROGRAF [Suspect]
     Active Substance: TACROLIMUS
     Indication: Pancreas transplant
  4. PROGRAF [Suspect]
     Active Substance: TACROLIMUS
     Indication: Small intestine transplant
  5. PROGRAF [Suspect]
     Active Substance: TACROLIMUS
     Indication: Liver transplant
     Dosage: 1 DF, ONCE DAILY (MORNING)
     Route: 065
  6. PROGRAF [Suspect]
     Active Substance: TACROLIMUS
     Indication: Renal transplant
  7. PROGRAF [Suspect]
     Active Substance: TACROLIMUS
     Indication: Pancreas transplant
  8. PROGRAF [Suspect]
     Active Substance: TACROLIMUS
     Indication: Small intestine transplant
  9. ASPIRIN [Concomitant]
     Active Substance: ASPIRIN
     Indication: Product used for unknown indication
     Dosage: 1 DF, ONCE DAILY (NOON)
     Route: 065
  10. PREDNISOLONE [Concomitant]
     Active Substance: PREDNISOLONE
     Indication: Product used for unknown indication
     Dosage: 1 DF, ONCE DAILY (MORNINGS)
     Route: 065
  11. SODIUM BICARBONATE [Concomitant]
     Active Substance: SODIUM BICARBONATE
     Indication: Product used for unknown indication
     Dosage: (2 DF EACH AT MORNINGS, NOON AND EVENINGS), THRICE DAILY
     Route: 065
  12. TORSEMIDE [Concomitant]
     Active Substance: TORSEMIDE
     Indication: Product used for unknown indication
     Dosage: 0.5 DF, ONCE DAILY (MORNINGS)
     Route: 065
  13. PANTOZOL [Concomitant]
     Active Substance: PANTOPRAZOLE SODIUM
     Indication: Product used for unknown indication
     Dosage: UNK UNK, ONCE DAILY (EVENING)
     Route: 065
  14. CHOLECALCIFEROL [Concomitant]
     Active Substance: CHOLECALCIFEROL
     Indication: Product used for unknown indication
     Dosage: 1 DF, EVERY 14 DAYS IN MORNINGS (20.000 I:E.)
     Route: 065
  15. ALLOBETA [Concomitant]
     Indication: Product used for unknown indication
     Dosage: 1 DF, ONCE DAILY (IN MORNINGS)
     Route: 065
  16. HYALURONATE SODIUM\TREHALOSE [Concomitant]
     Active Substance: HYALURONATE SODIUM\TREHALOSE
     Indication: Product used for unknown indication
     Dosage: UNK UNK, ONCE DAILY (MORNINGS)
     Route: 065
  17. Vagiflor [Concomitant]
     Indication: Product used for unknown indication
     Dosage: UNK UNK, UNKNOWN FREQ.
     Route: 065
  18. ESTRIOL [Concomitant]
     Active Substance: ESTRIOL
     Indication: Product used for unknown indication
     Dosage: UNK UNK, UNKNOWN FREQ.
     Route: 065
  19. D MANNOSE [Concomitant]
     Indication: Product used for unknown indication
     Dosage: 1 DF, ONCE DAILY (MORNINGS)
     Route: 065
  20. METAMIZOLE [Concomitant]
     Active Substance: METAMIZOLE
     Indication: Product used for unknown indication
     Dosage: UNK UNK, AS NEEDED (MORNINGS)
     Route: 065
  21. Pregabalin vivanta [Concomitant]
     Indication: Product used for unknown indication
     Dosage: 1 DF, ONCE DAILY (EVENINGS)
     Route: 065
  22. NALOXONE HYDROCHLORIDE\TILIDINE HYDROCHLORIDE [Concomitant]
     Active Substance: NALOXONE HYDROCHLORIDE\TILIDINE HYDROCHLORIDE
     Indication: Product used for unknown indication
     Dosage: UNK UNK, AS NEEDED (MORNINGS)
     Route: 065
  23. VENOFER [Concomitant]
     Active Substance: IRON SUCROSE
     Indication: Product used for unknown indication
     Dosage: UNK, EVERY 6 WEEKS IN THE MORNING
     Route: 065
  24. APLONA [Concomitant]
     Indication: Product used for unknown indication
     Dosage: 1 DF, 4 TIMES DAILY (MORNING, AFTERNOON, EVENING AND NIGHT)
     Route: 065
  25. IMODIUM [Concomitant]
     Active Substance: LOPERAMIDE HYDROCHLORIDE
     Indication: Product used for unknown indication
     Dosage: UNK UNK, AS NEEDED (MORNING)
     Route: 065
  26. PANCRELIPASE [Concomitant]
     Active Substance: PANCRELIPASE
     Indication: Product used for unknown indication
     Dosage: 1 DF, THRICE DAILY (MORNING, NOON AND EVENING) (35.000 EUR. LIPASE UNITS)
     Route: 065

REACTIONS (5)
  - General physical condition abnormal [Unknown]
  - Diverticulum intestinal [Unknown]
  - Diverticular perforation [Unknown]
  - Post procedural diarrhoea [Unknown]
  - Off label use [Unknown]

NARRATIVE: CASE EVENT DATE: 20050101
